FAERS Safety Report 14338555 (Version 4)
Quarter: 2018Q2

REPORT INFORMATION
  Report Type: Report from Study
  Country: DE (occurrence: DE)
  Receive Date: 20171229
  Receipt Date: 20180427
  Transmission Date: 20180711
  Serious: Yes (Other)
  Sender: FDA-Public Use
  Company Number: PHHY2017DE195300

PATIENT
  Sex: Female
  Weight: 50 kg

DRUGS (3)
  1. LETROZOLE. [Suspect]
     Active Substance: LETROZOLE
     Indication: BREAST CANCER METASTATIC
     Dosage: 2.5 MG, QD
     Route: 048
     Dates: start: 20171128
  2. KISQALI [Suspect]
     Active Substance: RIBOCICLIB
     Indication: BREAST CANCER METASTATIC
     Dosage: 600 MG, D1-21 Q4W
     Route: 048
     Dates: start: 20171128
  3. KISQALI [Suspect]
     Active Substance: RIBOCICLIB
     Indication: BREAST CANCER

REACTIONS (7)
  - Mucosal inflammation [Not Recovered/Not Resolved]
  - Bone pain [Recovered/Resolved]
  - Polyneuropathy [Not Recovered/Not Resolved]
  - Nasopharyngitis [Recovered/Resolved with Sequelae]
  - Dysgeusia [Not Recovered/Not Resolved]
  - Lacrimation increased [Recovered/Resolved]
  - Fatigue [Recovered/Resolved]

NARRATIVE: CASE EVENT DATE: 20171201
